FAERS Safety Report 6827249-2 (Version None)
Quarter: 2010Q3

REPORT INFORMATION
  Report Type: 
  Country: None (occurrence: None)
  Receive Date: 20100709
  Receipt Date: 20100629
  Transmission Date: 20110219
  Serious: Yes (Other)
  Sender: FDA-Public Use
  Company Number: US-PFIZER INC-2010056283

PATIENT
  Sex: Female
  Weight: 74.376 kg

DRUGS (6)
  1. CHANTIX [Suspect]
     Indication: SMOKING CESSATION THERAPY
     Dosage: 0.5 MG, 1X/DAY
     Route: 048
     Dates: start: 20070501, end: 20070601
  2. CHANTIX [Suspect]
     Dosage: 0.5 UNK, UNK
     Route: 048
     Dates: start: 20100615
  3. SPIRIVA [Concomitant]
     Indication: DYSPNOEA
     Dosage: UNK
  4. PENICILLIN NOS [Concomitant]
     Dosage: UNK
  5. ALBUTEROL [Concomitant]
     Indication: CHRONIC OBSTRUCTIVE PULMONARY DISEASE
     Dosage: UNK
  6. ZEGERID [Concomitant]
     Indication: DYSPEPSIA
     Dosage: UNK

REACTIONS (5)
  - BLOOD CHOLESTEROL INCREASED [None]
  - BLOOD PRESSURE DECREASED [None]
  - DEPRESSION [None]
  - PO2 DECREASED [None]
  - WEIGHT INCREASED [None]
